FAERS Safety Report 25784432 (Version 1)
Quarter: 2025Q3

REPORT INFORMATION
  Report Type: Spontaneous
  Country: EU (occurrence: EU)
  Receive Date: 20250910
  Receipt Date: 20250910
  Transmission Date: 20251021
  Serious: Yes (Other)
  Sender: Kenvue
  Company Number: EU-KENVUE-20250900545

PATIENT

DRUGS (2)
  1. MENS ROGAINE [Suspect]
     Active Substance: MINOXIDIL
     Indication: Product used for unknown indication
     Route: 065
  2. MENS ROGAINE [Suspect]
     Active Substance: MINOXIDIL
     Indication: Accidental exposure to product

REACTIONS (3)
  - Arrhythmia [Recovered/Resolved]
  - Hair growth abnormal [Not Recovered/Not Resolved]
  - Accidental exposure to product [Unknown]
